FAERS Safety Report 8762911 (Version 1)
Quarter: 2012Q4

REPORT INFORMATION
  Report Type: Spontaneous
  Country: US (occurrence: None)
  Receive Date: 20120830
  Receipt Date: 20120830
  Transmission Date: 20130627
  Serious: Yes (Other)
  Sender: FDA-Public Use
  Company Number: None

PATIENT
  Age: 82 Year
  Sex: Male

DRUGS (1)
  1. ADCIRCA [Suspect]
     Route: 048
     Dates: start: 20120801, end: 20120821

REACTIONS (5)
  - Headache [None]
  - Dyspnoea [None]
  - Oedema peripheral [None]
  - Abdominal distension [None]
  - Gait disturbance [None]
